FAERS Safety Report 7838276 (Version 2)
Quarter: 2015Q4

REPORT INFORMATION
  Report Type: Spontaneous
  Country: US (occurrence: US)
  Receive Date: 20110303
  Receipt Date: 20151130
  Transmission Date: 20160305
  Serious: No
  Sender: FDA-Public Use
  Company Number: US-BIOGENIDEC-2011BI007478

PATIENT
  Sex: Female

DRUGS (1)
  1. AVONEX [Suspect]
     Active Substance: INTERFERON BETA-1A
     Indication: MULTIPLE SCLEROSIS
     Route: 030
     Dates: start: 20040825

REACTIONS (4)
  - Injection site scar [Recovered/Resolved]
  - Injection site infection [Recovered/Resolved]
  - Injection site urticaria [Recovered/Resolved]
  - Injection site mass [Not Recovered/Not Resolved]
